FAERS Safety Report 5385329-5 (Version None)
Quarter: 2007Q3

REPORT INFORMATION
  Report Type: 
  Country: None (occurrence: None)
  Receive Date: 20070709
  Receipt Date: 20070709
  Transmission Date: 20080115
  Serious: No
  Sender: FDA-Public Use
  Company Number: None

PATIENT
  Age: 39 Year
  Sex: Male
  Weight: 68 kg

DRUGS (1)
  1. GATIFLOXACIN [Suspect]
     Indication: PYREXIA
     Dosage: 1 DAILY
     Dates: start: 20070708, end: 20070708

REACTIONS (1)
  - PRURITUS [None]
